FAERS Safety Report 21345545 (Version 1)
Quarter: 2022Q3

REPORT INFORMATION
  Report Type: Report from Study
  Country: GR (occurrence: GR)
  Receive Date: 20220916
  Receipt Date: 20220916
  Transmission Date: 20221026
  Serious: Yes (Other)
  Sender: FDA-Public Use
  Company Number: GR-ROCHE-2434049

PATIENT
  Age: 71 Year
  Sex: Female
  Weight: 85 kg

DRUGS (13)
  1. DOCETAXEL [Suspect]
     Active Substance: DOCETAXEL
     Indication: HER2 positive breast cancer
     Dosage: 120 MG, EVERY 3 WEEKS (LAST DOSE 05/OCT/2018)
     Route: 042
     Dates: start: 20180824
  2. TRASTUZUMAB [Suspect]
     Active Substance: TRASTUZUMAB
     Indication: HER2 positive breast cancer
     Dosage: 600 MG, EVERY 3 WEEKS
     Route: 042
     Dates: start: 20180824
  3. CARBOPLATIN [Suspect]
     Active Substance: CARBOPLATIN
     Indication: HER2 positive breast cancer
     Dosage: 300 MG, EVERY 3 WEEKS (LAST DOSE 05/OCT/2019)
     Route: 042
     Dates: start: 20180824
  4. PERTUZUMAB [Suspect]
     Active Substance: PERTUZUMAB
     Indication: HER2 positive breast cancer
     Dosage: 420 MG, EVERY 3 WEEKS (LAST DOSE 05/OCT/2018)
     Route: 042
     Dates: start: 20180824
  5. LETROZOLE [Suspect]
     Active Substance: LETROZOLE
     Indication: HER2 positive breast cancer
     Dosage: 5 MG, 1X/DAY
     Route: 048
     Dates: start: 20190131
  6. FLUOXETINE HYDROCHLORIDE [Concomitant]
     Active Substance: FLUOXETINE HYDROCHLORIDE
     Dosage: UNK
  7. GLUCOPHAGE [Concomitant]
     Active Substance: METFORMIN HYDROCHLORIDE
     Dosage: UNK
  8. PEGFILGRASTIM [Concomitant]
     Active Substance: PEGFILGRASTIM
     Dosage: UNK
     Dates: start: 20180824, end: 20191005
  9. ESOMEPRAZOLE [Concomitant]
     Active Substance: ESOMEPRAZOLE
     Dosage: UNK
  10. BISOPROLOL FUMARATE [Concomitant]
     Active Substance: BISOPROLOL FUMARATE
     Dosage: UNK
  11. PITAVASTATIN [Concomitant]
     Active Substance: PITAVASTATIN
     Dosage: UNK
  12. IRBESARTAN [Concomitant]
     Active Substance: IRBESARTAN
     Dosage: UNK
  13. ELIQUIS [Concomitant]
     Active Substance: APIXABAN
     Dosage: UNK

REACTIONS (1)
  - Renal failure [Recovering/Resolving]

NARRATIVE: CASE EVENT DATE: 20190218
